FAERS Safety Report 4947231-X (Version None)
Quarter: 2006Q1

REPORT INFORMATION
  Report Type: 
  Country: None (occurrence: None)
  Receive Date: 20060317
  Receipt Date: 20060306
  Transmission Date: 20060701
  Serious: Yes (Other)
  Sender: FDA-Public Use
  Company Number: 2006AC00440

PATIENT
  Age: 69 Year
  Sex: Female

DRUGS (2)
  1. TAMOXIFEN CITRATE [Suspect]
     Indication: BREAST CANCER
     Route: 048
  2. TIBOLONE [Suspect]
     Indication: MENOPAUSAL SYMPTOMS
     Dosage: TAKEN FOR THE PAST FEW YEARS.

REACTIONS (2)
  - VAGINAL HAEMORRHAGE [None]
  - VAGINAL POLYP [None]
